FAERS Safety Report 16805253 (Version 1)
Quarter: 2019Q3

REPORT INFORMATION
  Report Type: Spontaneous
  Country: RO (occurrence: RO)
  Receive Date: 20190913
  Receipt Date: 20190913
  Transmission Date: 20191005
  Serious: Yes (Other)
  Sender: FDA-Public Use
  Company Number: PHHY2019RO187983

PATIENT
  Age: 31 Year
  Sex: Male

DRUGS (5)
  1. PASIREOTIDE. [Suspect]
     Active Substance: PASIREOTIDE
     Indication: ACROMEGALY
     Dosage: 40 MG, QMO
     Route: 065
  2. CABERGOLINE. [Suspect]
     Active Substance: CABERGOLINE
     Indication: ACROMEGALY
     Dosage: UPTO 3 MG, QW
     Route: 065
  3. PEGVISOMANT [Suspect]
     Active Substance: PEGVISOMANT
     Indication: ACROMEGALY
     Dosage: 80 MG, QW
     Route: 058
  4. OCTREOTIDE LAR [Suspect]
     Active Substance: OCTREOTIDE
     Indication: ACROMEGALY
     Dosage: 20 MG/ML, QMO
     Route: 065
  5. OCTREOTIDE LAR [Suspect]
     Active Substance: OCTREOTIDE
     Dosage: 30 MG/ML, QMO
     Route: 065

REACTIONS (3)
  - Drug ineffective [Unknown]
  - Therapeutic product effect incomplete [Unknown]
  - Hepatocellular injury [Unknown]
